FAERS Safety Report 8189219-4 (Version None)
Quarter: 2012Q1

REPORT INFORMATION
  Report Type: 
  Country: None (occurrence: None)
  Receive Date: 20120306
  Receipt Date: 20120306
  Transmission Date: 20120608
  Serious: Yes (Hospitalization)
  Sender: FDA-Public Use
  Company Number: None

PATIENT
  Sex: Female
  Weight: 71 kg

DRUGS (1)
  1. CISPLATIN [Suspect]
     Dosage: 372 MG

REACTIONS (3)
  - BLOOD CREATININE INCREASED [None]
  - VOMITING [None]
  - BLOOD UREA INCREASED [None]
